FAERS Safety Report 11894949 (Version 4)
Quarter: 2016Q4

REPORT INFORMATION
  Report Type: Spontaneous
  Country: FR (occurrence: FR)
  Receive Date: 20160107
  Receipt Date: 20161110
  Transmission Date: 20170206
  Serious: Yes (Other)
  Sender: FDA-Public Use
  Company Number: FR-SA-2015SA217463

PATIENT
  Age: 59 Year
  Sex: Male
  Weight: 61 kg

DRUGS (15)
  1. INEXIUM [Concomitant]
     Active Substance: ESOMEPRAZOLE
  2. BACTRIM [Concomitant]
     Active Substance: SULFAMETHOXAZOLE\TRIMETHOPRIM
  3. CELLCEPT [Concomitant]
     Active Substance: MYCOPHENOLATE MOFETIL\MYCOPHENOLATE MOFETIL HYDROCHLORIDE
     Dosage: AT  8:00 + 20:00 HOURS
  4. FABRAZYME [Suspect]
     Active Substance: AGALSIDASE BETA
     Indication: FABRY^S DISEASE
     Route: 041
     Dates: start: 200912
  5. LEDERFOLINE [Concomitant]
     Active Substance: LEUCOVORIN CALCIUM
  6. AERIUS [Concomitant]
     Active Substance: DESLORATADINE
     Indication: PREMEDICATION
     Dosage: 1 TABLET THE DAY BEFORE, 1 TABLET ON DAY OF INFUSION AND 1 TABLET THE DAY AFTER THE INFUSION
  7. PROGRAF [Concomitant]
     Active Substance: TACROLIMUS\TACROLIMUS ANHYDROUS
  8. FIXICAL [Concomitant]
     Active Substance: CALCIUM CARBONATE
     Dosage: 500X2 ON MORNING
  9. RESIKALI [Concomitant]
     Active Substance: CALCIUM POLYSTYRENE SULFONATE
  10. AMLOR [Concomitant]
     Active Substance: AMLODIPINE BESYLATE
     Dosage: ON MORNING
  11. EZETROL [Concomitant]
     Active Substance: EZETIMIBE
  12. ICAZ [Concomitant]
     Active Substance: ISRADIPINE
  13. RENITEC [Concomitant]
     Active Substance: ENALAPRIL MALEATE
     Dosage: ON MORNING AND EVENING
  14. SOLUPRED [Concomitant]
     Active Substance: PREDNISOLONE
  15. KARDEGIC [Concomitant]
     Active Substance: ASPIRIN LYSINE

REACTIONS (14)
  - Influenza like illness [Not Recovered/Not Resolved]
  - Pain [Not Recovered/Not Resolved]
  - Pallor [Not Recovered/Not Resolved]
  - Malaise [Not Recovered/Not Resolved]
  - Feeling cold [Not Recovered/Not Resolved]
  - Fatigue [Not Recovered/Not Resolved]
  - Haemoglobin decreased [Unknown]
  - Red blood cell count decreased [Unknown]
  - Headache [Not Recovered/Not Resolved]
  - Chills [Not Recovered/Not Resolved]
  - Blood pressure fluctuation [Not Recovered/Not Resolved]
  - Tremor [Not Recovered/Not Resolved]
  - Haematocrit decreased [Unknown]
  - Renal failure [Recovered/Resolved]

NARRATIVE: CASE EVENT DATE: 20151106
